FAERS Safety Report 7674037-3 (Version None)
Quarter: 2011Q3

REPORT INFORMATION
  Report Type: 
  Country: None (occurrence: None)
  Receive Date: 20110808
  Receipt Date: 20110729
  Transmission Date: 20111222
  Serious: Yes (Hospitalization, Other)
  Sender: FDA-Public Use
  Company Number: 2011P1008050

PATIENT
  Age: 18 Year
  Sex: Male
  Weight: 70.3075 kg

DRUGS (2)
  1. LAMOTRIGINE [Suspect]
     Indication: CONVULSION
     Dosage: 100 MG;BID ; 150 MG;BID
     Dates: start: 20110529, end: 20110616
  2. LAMOTRIGINE [Suspect]
     Indication: CONVULSION
     Dosage: 100 MG;BID ; 150 MG;BID
     Dates: start: 20110617, end: 20110619

REACTIONS (12)
  - INFLUENZA LIKE ILLNESS [None]
  - BLOOD PRESSURE INCREASED [None]
  - DYSARTHRIA [None]
  - VISION BLURRED [None]
  - DYSPNOEA [None]
  - COUGH [None]
  - DRUG RASH WITH EOSINOPHILIA AND SYSTEMIC SYMPTOMS [None]
  - LETHARGY [None]
  - PHOTOPSIA [None]
  - HEART RATE INCREASED [None]
  - ARTHRALGIA [None]
  - CONFUSIONAL STATE [None]
